FAERS Safety Report 6623516-6 (Version None)
Quarter: 2010Q1

REPORT INFORMATION
  Report Type: 
  Country: None (occurrence: None)
  Receive Date: 20100305
  Receipt Date: 20100225
  Transmission Date: 20100710
  Serious: Yes (Other)
  Sender: FDA-Public Use
  Company Number: 2010SP012401

PATIENT
  Age: 83 Year
  Sex: Female

DRUGS (5)
  1. REMERON [Suspect]
     Indication: DEPRESSION
     Dosage: ;UNK;PO
     Route: 048
  2. REMERON [Suspect]
     Indication: SEDATIVE THERAPY
     Dosage: ;UNK;PO
     Route: 048
  3. ATENOLOL [Suspect]
     Indication: DRUG USE FOR UNKNOWN INDICATION
     Dosage: UNK;PO
     Route: 048
  4. VECASTEN (MELLOTUS OFFICINALIS EXTRACT) [Suspect]
     Indication: DRUG USE FOR UNKNOWN INDICATION
     Dosage: UNK;PO
     Route: 048
  5. GLIMEPRIDE (GLIMEPIRIDE) [Suspect]
     Indication: DIABETES MELLITUS
     Dosage: UNK;PO
     Route: 048

REACTIONS (2)
  - ANGINA PECTORIS [None]
  - DRUG INTERACTION [None]
